FAERS Safety Report 7334430-5 (Version None)
Quarter: 2011Q1

REPORT INFORMATION
  Report Type: 
  Country: None (occurrence: None)
  Receive Date: 20110307
  Receipt Date: 20110228
  Transmission Date: 20110831
  Serious: Yes (Death)
  Sender: FDA-Public Use
  Company Number: PHHO2011DE03170

PATIENT
  Sex: Female

DRUGS (1)
  1. ESTRADIOL,NORETHISTERONE ACETATE [Suspect]
     Indication: MENOPAUSAL SYMPTOMS
     Dosage: UNK
     Route: 062

REACTIONS (1)
  - BREAST CANCER [None]
